FAERS Safety Report 6089430-2 (Version None)
Quarter: 2009Q1

REPORT INFORMATION
  Report Type: 
  Country: None (occurrence: None)
  Receive Date: 20090224
  Receipt Date: 20090211
  Transmission Date: 20090719
  Serious: Yes (Other)
  Sender: FDA-Public Use
  Company Number: ZA-ELI_LILLY_AND_COMPANY-ZA200811003637

PATIENT
  Sex: Male

DRUGS (8)
  1. CIALIS [Suspect]
     Indication: ERECTILE DYSFUNCTION
     Dosage: 20 MG, AS NEEDED
     Route: 048
     Dates: start: 20081001, end: 20081001
  2. METFORMIN [Concomitant]
     Indication: DIABETES MELLITUS
     Dosage: UNK, UNKNOWN
     Route: 065
  3. LISINOPRIL [Concomitant]
     Indication: HYPERTENSION
     Dosage: UNK, UNKNOWN
     Route: 065
  4. BISOCOR [Concomitant]
     Indication: HYPERTENSION
     Dosage: UNK, UNKNOWN
     Route: 065
  5. INDAPAMIDE [Concomitant]
     Indication: HYPERTENSION
     Dosage: UNK, UNKNOWN
     Route: 065
  6. PLAVIX [Concomitant]
     Indication: MYOCARDIAL ISCHAEMIA
     Dosage: UNK, UNKNOWN
     Route: 065
  7. ASPIRIN [Concomitant]
     Indication: MYOCARDIAL ISCHAEMIA
     Dosage: UNK, UNKNOWN
     Route: 065
  8. SUSTANON /00418401/ [Concomitant]
     Indication: HYPOGONADISM
     Dosage: UNK, UNKNOWN
     Route: 065

REACTIONS (2)
  - DEAFNESS BILATERAL [None]
  - DRUG INEFFECTIVE [None]
